FAERS Safety Report 25271153 (Version 1)
Quarter: 2025Q2

REPORT INFORMATION
  Report Type: Spontaneous
  Country: GR (occurrence: None)
  Receive Date: 20250506
  Receipt Date: 20250506
  Transmission Date: 20250717
  Serious: Yes (Other)
  Sender: NATCO PHARMA
  Company Number: GR-NATCOUSA-2025-NATCOUSA-000295

PATIENT
  Age: 75 Year
  Sex: Female

DRUGS (1)
  1. MOXIFLOXACIN [Suspect]
     Active Substance: MOXIFLOXACIN
     Indication: Pneumonia
     Route: 042

REACTIONS (2)
  - Iris atrophy [Unknown]
  - Iris transillumination defect [Unknown]
